FAERS Safety Report 10137611 (Version 1)
Quarter: 2014Q2

REPORT INFORMATION
  Report Type: Spontaneous
  Country: US (occurrence: None)
  Receive Date: 20140428
  Receipt Date: 20140428
  Transmission Date: 20141212
  Serious: Yes (Hospitalization)
  Sender: FDA-Public Use
  Company Number: None

PATIENT
  Age: 67 Year
  Sex: Male
  Weight: 106.59 kg

DRUGS (3)
  1. BICALUTAMIDE [Suspect]
  2. DOCETAXEL (TAXOTERE) [Suspect]
  3. FLUTAMIDE [Suspect]

REACTIONS (6)
  - Flank pain [None]
  - Nausea [None]
  - Vomiting [None]
  - Dysuria [None]
  - Hydronephrosis [None]
  - Ureteric stenosis [None]
